FAERS Safety Report 6683302-8 (Version None)
Quarter: 2010Q2

REPORT INFORMATION
  Report Type: 
  Country: None (occurrence: None)
  Receive Date: 20100415
  Receipt Date: 20100408
  Transmission Date: 20101027
  Serious: Yes (Other)
  Sender: FDA-Public Use
  Company Number: DE-JNJCH-2009024344

PATIENT
  Sex: Male

DRUGS (1)
  1. ROGAINE [Suspect]
     Indication: DRUG USE FOR UNKNOWN INDICATION
     Dosage: TEXT:UNSPECIFIED
     Route: 061

REACTIONS (12)
  - ALOPECIA [None]
  - CARDIAC DISORDER [None]
  - CARDIOMEGALY [None]
  - DYSPNOEA [None]
  - ERYTHEMA [None]
  - EYE SWELLING [None]
  - FACE OEDEMA [None]
  - HAIR COLOUR CHANGES [None]
  - OCULAR HYPERAEMIA [None]
  - PALPITATIONS [None]
  - SKIN BURNING SENSATION [None]
  - VISUAL IMPAIRMENT [None]
